FAERS Safety Report 16807245 (Version 1)
Quarter: 2019Q3

REPORT INFORMATION
  Report Type: Spontaneous
  Country: FR (occurrence: FR)
  Receive Date: 20190913
  Receipt Date: 20190913
  Transmission Date: 20191005
  Serious: Yes (Death, Other)
  Sender: FDA-Public Use
  Company Number: FR-BAUSCH-BL-2019-026441

PATIENT
  Age: 60 Year
  Sex: Female

DRUGS (14)
  1. BROMAZEPAM [Suspect]
     Active Substance: BROMAZEPAM
     Indication: OFF LABEL USE
  2. CYAMEMAZINE [Suspect]
     Active Substance: CYAMEMAZINE
     Indication: COMPLETED SUICIDE
     Route: 048
  3. ALPRAZOLAM. [Suspect]
     Active Substance: ALPRAZOLAM
     Indication: COMPLETED SUICIDE
     Route: 048
  4. LORAZEPAM. [Suspect]
     Active Substance: LORAZEPAM
     Indication: OFF LABEL USE
  5. BROMAZEPAM [Suspect]
     Active Substance: BROMAZEPAM
     Indication: COMPLETED SUICIDE
     Route: 048
  6. ZOPICLONE [Suspect]
     Active Substance: ZOPICLONE
     Indication: OFF LABEL USE
  7. OXAZEPAM. [Suspect]
     Active Substance: OXAZEPAM
     Indication: COMPLETED SUICIDE
     Route: 048
  8. ALPRAZOLAM. [Suspect]
     Active Substance: ALPRAZOLAM
     Indication: PRODUCT USED FOR UNKNOWN INDICATION
     Route: 065
  9. LORAZEPAM. [Suspect]
     Active Substance: LORAZEPAM
     Indication: COMPLETED SUICIDE
     Route: 048
  10. LORMETAZEPAM [Suspect]
     Active Substance: LORMETAZEPAM
     Indication: COMPLETED SUICIDE
     Route: 048
  11. QUETIAPINE. [Suspect]
     Active Substance: QUETIAPINE
     Indication: COMPLETED SUICIDE
     Route: 048
  12. QUETIAPINE. [Suspect]
     Active Substance: QUETIAPINE
     Indication: OFF LABEL USE
  13. ZOPICLONE [Suspect]
     Active Substance: ZOPICLONE
     Indication: COMPLETED SUICIDE
     Route: 048
  14. ALPRAZOLAM. [Suspect]
     Active Substance: ALPRAZOLAM
     Indication: OFF LABEL USE

REACTIONS (4)
  - Completed suicide [Fatal]
  - Potentiating drug interaction [Fatal]
  - Toxicity to various agents [Fatal]
  - Intentional overdose [Fatal]
